FAERS Safety Report 7393090-8 (Version None)
Quarter: 2011Q2

REPORT INFORMATION
  Report Type: 
  Country: None (occurrence: None)
  Receive Date: 20110404
  Receipt Date: 20110331
  Transmission Date: 20111010
  Serious: Yes (Death, Other)
  Sender: FDA-Public Use
  Company Number: BE-ROXANE LABORATORIES, INC.-2011-RO-00433RO

PATIENT
  Age: 41 Year
  Sex: Male

DRUGS (9)
  1. TAMOXIFEN CITRATE [Suspect]
     Indication: BREAST CANCER
     Dosage: 20 MG
  2. CYCLOPHOSPHAMIDE [Suspect]
     Indication: BREAST CANCER
     Route: 042
  3. DOXORUBICIN [Suspect]
     Indication: METASTASES TO BONE
  4. ZOLEDRONIC ACID [Suspect]
     Indication: METASTASES TO BONE
  5. TAMOXIFEN CITRATE [Suspect]
     Indication: METASTASES TO BONE
  6. ZOLEDRONIC ACID [Suspect]
     Indication: BREAST CANCER
  7. CYCLOPHOSPHAMIDE [Suspect]
     Indication: METASTASES TO BONE
  8. AZATHIOPRINE [Suspect]
  9. DOXORUBICIN [Suspect]
     Indication: BREAST CANCER
     Route: 042

REACTIONS (4)
  - METASTASIS [None]
  - MYOPATHY [None]
  - DEATH [None]
  - OBLITERATIVE BRONCHIOLITIS [None]
